FAERS Safety Report 8845998 (Version 1)
Quarter: 2012Q4

REPORT INFORMATION
  Report Type: Report from Study
  Country: None (occurrence: US)
  Receive Date: 20121017
  Receipt Date: 20121017
  Transmission Date: 20130627
  Serious: Yes (Other)
  Sender: FDA-Public Use
  Company Number: US-ABBOTT-12P-163-0994475-00

PATIENT
  Age: 68 Year
  Sex: Female

DRUGS (19)
  1. HUMIRA [Suspect]
     Indication: RHEUMATOID ARTHRITIS
     Dates: end: 20120402
  2. BIOTIN [Concomitant]
     Indication: DRY MOUTH
     Dosage: wash out her mouth
     Route: 048
  3. BIOTIN [Concomitant]
     Indication: DRY MOUTH
  4. CENTRUM SILVER [Concomitant]
     Indication: VITAMIN SUPPLEMENTATION
     Dosage: Daily
     Route: 048
  5. FENTANYL [Concomitant]
     Indication: PAIN
     Dosage: 25 mcg patch applied every 3 days
     Route: 061
  6. FOLIC ACID [Concomitant]
     Indication: VITAMIN SUPPLEMENTATION
     Dosage: Two tablets daily
     Route: 048
  7. LEUCOVORIN CALCIUM [Concomitant]
     Indication: DRUG THERAPY
     Route: 048
  8. IMITREX [Concomitant]
     Indication: MIGRAINE
     Dosage: 1/2 tablet
     Route: 048
  9. LIDOCAIN HCL [Concomitant]
     Indication: PROCTALGIA
  10. LIDOCAIN HCL [Concomitant]
  11. OXYCODONE HCL [Concomitant]
     Indication: PAIN
     Route: 048
  12. PREDNISONE [Concomitant]
     Indication: RHEUMATOID ARTHRITIS
     Route: 048
  13. PROZAC [Concomitant]
     Indication: ANXIETY
     Route: 048
  14. PROZAC [Concomitant]
     Indication: DEPRESSION
  15. TEGRETOL [Concomitant]
     Indication: BIPOLAR DISORDER
     Route: 048
  16. VITAMIN D [Concomitant]
     Indication: VITAMIN SUPPLEMENTATION
     Route: 048
  17. XANAX [Concomitant]
     Indication: INSOMNIA
     Route: 048
  18. SIMVASTATIN [Concomitant]
     Indication: BLOOD CHOLESTEROL INCREASED
     Route: 048
  19. SIMVASTATIN [Concomitant]
     Indication: BLOOD CHOLESTEROL ABNORMAL
     Route: 048

REACTIONS (4)
  - Anal fissure [Recovered/Resolved]
  - Anal fissure [Recovered/Resolved]
  - Skin cancer [Recovered/Resolved]
  - Rheumatoid arthritis [Not Recovered/Not Resolved]
